FAERS Safety Report 6852655-X (Version None)
Quarter: 2010Q3

REPORT INFORMATION
  Report Type: 
  Country: None (occurrence: None)
  Receive Date: 20100717
  Receipt Date: 20071119
  Transmission Date: 20110219
  Serious: No
  Sender: FDA-Public Use
  Company Number: US-PFIZER INC-2007099816

PATIENT
  Sex: Female

DRUGS (19)
  1. CHANTIX [Suspect]
     Indication: SMOKING CESSATION THERAPY
     Route: 048
     Dates: start: 20071025
  2. AVANDIA [Concomitant]
  3. AVANDIA [Concomitant]
  4. ACETYLSALICYLIC ACID [Concomitant]
  5. ACETYLSALICYLIC ACID [Concomitant]
  6. CRESTOR [Concomitant]
  7. CRESTOR [Concomitant]
  8. KLONOPIN [Concomitant]
  9. KLONOPIN [Concomitant]
  10. CYMBALTA [Concomitant]
  11. CYMBALTA [Concomitant]
  12. CLONIDINE [Concomitant]
  13. CLONIDINE [Concomitant]
  14. SYNTHROID [Concomitant]
  15. SYNTHROID [Concomitant]
  16. LISINOPRIL [Concomitant]
  17. LISINOPRIL [Concomitant]
  18. NASACORT [Concomitant]
  19. NASACORT [Concomitant]

REACTIONS (6)
  - ABNORMAL DREAMS [None]
  - DEPRESSION [None]
  - MALAISE [None]
  - NAUSEA [None]
  - SOMNOLENCE [None]
  - TREMOR [None]
